FAERS Safety Report 10170629 (Version 3)
Quarter: 2016Q3

REPORT INFORMATION
  Report Type: Report from Study
  Country: US (occurrence: US)
  Receive Date: 20140514
  Receipt Date: 20160815
  Transmission Date: 20161108
  Serious: Yes (Other)
  Sender: FDA-Public Use
  Company Number: US-ROCHE-1398401

PATIENT
  Sex: Female
  Weight: 82.17 kg

DRUGS (25)
  1. NUTROPIN AQ [Suspect]
     Active Substance: SOMATROPIN
     Indication: GROWTH HORMONE DEFICIENCY
     Route: 058
  2. LEVOTHROID [Concomitant]
     Active Substance: LEVOTHYROXINE SODIUM
     Dosage: EVERY MORNING EMPTY STOMACH
     Route: 065
  3. NUTROPIN AQ [Suspect]
     Active Substance: SOMATROPIN
     Route: 058
     Dates: start: 201201
  4. ESTRING [Concomitant]
     Active Substance: ESTRADIOL
     Dosage: 1 RING EVERY 3 MONTHS
     Route: 065
     Dates: start: 20140110
  5. ROCEPHIN [Suspect]
     Active Substance: CEFTRIAXONE SODIUM
     Indication: PRODUCT USED FOR UNKNOWN INDICATION
     Route: 065
  6. AMITIZA [Concomitant]
     Active Substance: LUBIPROSTONE
     Dosage: WITH FOOD OR MILK
     Route: 065
  7. ROPINIROLE HYDROCHLORIDE. [Concomitant]
     Active Substance: ROPINIROLE HYDROCHLORIDE
     Route: 065
  8. HYDROCHLOROTHIAZIDE. [Concomitant]
     Active Substance: HYDROCHLOROTHIAZIDE
     Dosage: 10-12.5MG
     Route: 065
  9. BUTALBITAL WITH ACETAMINOPHEN [Concomitant]
     Dosage: AS REQUIRED
     Route: 065
  10. CREON [Concomitant]
     Active Substance: PANCRELIPASE AMYLASE\PANCRELIPASE LIPASE\PANCRELIPASE PROTEASE
     Dosage: 24000 UNIT
     Route: 065
  11. BACLOFEN. [Concomitant]
     Active Substance: BACLOFEN
     Dosage: WITH FOOD OR MILK
     Route: 065
  12. ALLEGRA [Concomitant]
     Active Substance: FEXOFENADINE HYDROCHLORIDE
     Route: 065
  13. NUTROPIN AQ [Suspect]
     Active Substance: SOMATROPIN
     Route: 058
     Dates: end: 20140312
  14. LISINOPRIL. [Concomitant]
     Active Substance: LISINOPRIL
     Dosage: 10-12.5MG
     Route: 065
  15. PROMETHAZINE HCL [Concomitant]
     Active Substance: PROMETHAZINE HYDROCHLORIDE
     Dosage: AT BEDTIME AS REQUIRED
     Route: 065
  16. XOPENEX [Concomitant]
     Active Substance: LEVALBUTEROL HYDROCHLORIDE
     Dosage: AS REQUIRED
     Route: 065
  17. ESTRADIOL. [Concomitant]
     Active Substance: ESTRADIOL
     Route: 065
  18. PYRIDIUM [Concomitant]
     Active Substance: PHENAZOPYRIDINE
     Route: 065
  19. NEXIUM [Concomitant]
     Active Substance: ESOMEPRAZOLE MAGNESIUM
     Route: 065
  20. ZONISAMIDE. [Concomitant]
     Active Substance: ZONISAMIDE
     Route: 065
  21. CLONAZEPAM. [Suspect]
     Active Substance: CLONAZEPAM
     Indication: PRODUCT USED FOR UNKNOWN INDICATION
     Route: 048
  22. PRAMIPEXOLE DIHYDROCHLORIDE. [Concomitant]
     Active Substance: PRAMIPEXOLE DIHYDROCHLORIDE
     Route: 065
  23. ESTRACE [Concomitant]
     Active Substance: ESTRADIOL
     Dosage: 0.1MG/GM, AS DIRECTED ONCE A DAY
     Route: 065
  24. PRISTIQ EXTENDED-RELEASE [Concomitant]
     Active Substance: DESVENLAFAXINE SUCCINATE
     Route: 065
  25. SUMATRIPTAN SUCCINATE. [Concomitant]
     Active Substance: SUMATRIPTAN SUCCINATE
     Route: 048

REACTIONS (20)
  - Protein urine present [Unknown]
  - Headache [Unknown]
  - Drug hypersensitivity [Unknown]
  - General physical health deterioration [Unknown]
  - Malaise [Unknown]
  - Hot flush [Unknown]
  - Weight decreased [Unknown]
  - Bone pain [Unknown]
  - Renal disorder [Unknown]
  - Anxiety [Unknown]
  - Sleep disorder [Unknown]
  - Impaired gastric emptying [Unknown]
  - Glucose urine [Unknown]
  - Myalgia [Unknown]
  - Chills [Unknown]
  - Arthralgia [Unknown]
  - Depression [Unknown]
  - Multiple organ dysfunction syndrome [Unknown]
  - Peripheral swelling [Unknown]
  - Hepatic steatosis [Unknown]
